FAERS Safety Report 5615313-5 (Version None)
Quarter: 2008Q1

REPORT INFORMATION
  Report Type: 
  Country: None (occurrence: None)
  Receive Date: 20080201
  Receipt Date: 20080125
  Transmission Date: 20080703
  Serious: Yes (Hospitalization)
  Sender: FDA-Public Use
  Company Number: 028-C5013-08011437

PATIENT
  Age: 75 Year
  Sex: Female

DRUGS (1)
  1. CC-5013            (LENALIDOMIDE)           (CAPSULES) [Suspect]
     Indication: MULTIPLE MYELOMA
     Dosage: ORAL
     Route: 048
     Dates: start: 20080118, end: 20080125

REACTIONS (1)
  - ACUTE CORONARY SYNDROME [None]
